FAERS Safety Report 10209579 (Version 1)
Quarter: 2014Q2

REPORT INFORMATION
  Report Type: Report from Study
  Country: US (occurrence: US)
  Receive Date: 20140602
  Receipt Date: 20140602
  Transmission Date: 20141212
  Serious: Yes (Other)
  Sender: FDA-Public Use
  Company Number: US-ROCHE-1411255

PATIENT
  Age: 75 Year
  Sex: Male
  Weight: 90.8 kg

DRUGS (6)
  1. RITUXAN [Suspect]
     Indication: CHRONIC LYMPHOCYTIC LEUKAEMIA
     Route: 042
     Dates: start: 201001, end: 201202
  2. TREANDA [Suspect]
     Indication: CHRONIC LYMPHOCYTIC LEUKAEMIA
     Route: 042
     Dates: start: 201201
  3. FLUDARABINE [Suspect]
     Indication: CHRONIC LYMPHOCYTIC LEUKAEMIA
     Route: 042
     Dates: start: 201001
  4. CRESTOR [Concomitant]
     Route: 048
  5. CELEBREX [Concomitant]
     Route: 048
  6. GAMMA GLOBULIN [Concomitant]
     Route: 042

REACTIONS (1)
  - Amnesia [Not Recovered/Not Resolved]
